FAERS Safety Report 17313957 (Version 1)
Quarter: 2020Q1

REPORT INFORMATION
  Report Type: Other
  Country: GB (occurrence: GB)
  Receive Date: 20200124
  Receipt Date: 20200124
  Transmission Date: 20200409
  Serious: No
  Sender: FDA-Public Use
  Company Number: GB-LUPIN PHARMACEUTICALS INC.-2019-08573

PATIENT
  Age: 20 Year
  Sex: Female
  Weight: 92 kg

DRUGS (2)
  1. LOGYNON [Concomitant]
     Indication: ILL-DEFINED DISORDER
     Dosage: UNK
     Route: 065
  2. SERTRALINE [Suspect]
     Active Substance: SERTRALINE HYDROCHLORIDE
     Indication: DEPRESSION
     Dosage: 50 MILLIGRAM
     Route: 048
     Dates: start: 20190910

REACTIONS (2)
  - Abnormal dreams [Not Recovered/Not Resolved]
  - Yawning [Not Recovered/Not Resolved]
